FAERS Safety Report 13584803 (Version 2)
Quarter: 2017Q2

REPORT INFORMATION
  Report Type: Spontaneous
  Country: CH (occurrence: CH)
  Receive Date: 20170526
  Receipt Date: 20170612
  Transmission Date: 20170830
  Serious: Yes (Other)
  Sender: FDA-Public Use
  Company Number: CH-GLENMARK PHARMACEUTICALS-2017GMK027630

PATIENT
  Sex: Male
  Weight: 2.45 kg

DRUGS (2)
  1. CARVEDILOL. [Suspect]
     Active Substance: CARVEDILOL
     Indication: HYPERTENSION
     Dosage: 0.04 MG/KG, BID
     Route: 065
  2. DIGOXIN. [Interacting]
     Active Substance: DIGOXIN
     Indication: POSITIVE CARDIAC INOTROPIC EFFECT
     Dosage: 3 MCGKG, QD
     Route: 065

REACTIONS (6)
  - Arrhythmia [Recovered/Resolved]
  - Cardioactive drug level increased [Unknown]
  - Toxicity to various agents [Unknown]
  - Atrioventricular block first degree [Unknown]
  - Drug interaction [Unknown]
  - Atrioventricular block second degree [Unknown]
